FAERS Safety Report 10576008 (Version 1)
Quarter: 2014Q4

REPORT INFORMATION
  Report Type: Spontaneous
  Country: US (occurrence: None)
  Receive Date: 20141110
  Receipt Date: 20141110
  Transmission Date: 20150529
  Serious: Yes (Other)
  Sender: FDA-Public Use
  Company Number: None

PATIENT
  Age: 53 Year
  Sex: Male
  Weight: 70.31 kg

DRUGS (2)
  1. VALACYCLOVIR [Suspect]
     Active Substance: VALACYCLOVIR HYDROCHLORIDE
     Indication: VESTIBULAR DISORDER
     Route: 048
     Dates: start: 20141105, end: 20141107
  2. VALACYCLOVIR [Suspect]
     Active Substance: VALACYCLOVIR HYDROCHLORIDE
     Indication: VIRAL INFECTION
     Route: 048
     Dates: start: 20141105, end: 20141107

REACTIONS (3)
  - Erythema [None]
  - Papule [None]
  - Rash pruritic [None]

NARRATIVE: CASE EVENT DATE: 20141107
